FAERS Safety Report 10966149 (Version 1)
Quarter: 2015Q1

REPORT INFORMATION
  Report Type: Spontaneous
  Country: US (occurrence: US)
  Receive Date: 20150330
  Receipt Date: 20150330
  Transmission Date: 20150721
  Serious: No
  Sender: FDA-Public Use
  Company Number: US-MYLANLABS-2014S1003313

PATIENT
  Sex: Female
  Weight: 99.79 kg

DRUGS (6)
  1. FENTANYL TRANSDERMAL SYSTEM [Suspect]
     Active Substance: FENTANYL
     Indication: BACK PAIN
     Dosage: 25 ?G,QH
     Route: 062
     Dates: start: 2013
  2. GLUCOPHAGE [Concomitant]
     Active Substance: METFORMIN HYDROCHLORIDE
     Indication: DIABETES MELLITUS
     Dosage: 1000 MG,BID
  3. ULTRAM [Concomitant]
     Active Substance: TRAMADOL HYDROCHLORIDE
     Indication: PAIN
     Dosage: 50 MG,QID
  4. METHOCARBAMOL. [Concomitant]
     Active Substance: METHOCARBAMOL
     Indication: PAIN
     Dosage: UNK UNK,PRN
  5. NEURONTIN [Concomitant]
     Active Substance: GABAPENTIN
     Dosage: 900 MG,QD
     Route: 048
  6. INSULIN /00646001/ [Concomitant]
     Active Substance: INSULIN NOS
     Indication: DIABETES MELLITUS
     Dosage: 75 IU,BID
     Route: 058

REACTIONS (5)
  - Drug ineffective [Recovered/Resolved]
  - Back pain [Recovered/Resolved]
  - Application site laceration [Not Recovered/Not Resolved]
  - Application site erythema [Not Recovered/Not Resolved]
  - Application site pruritus [Not Recovered/Not Resolved]

NARRATIVE: CASE EVENT DATE: 2013
